FAERS Safety Report 7997475 (Version 6)
Quarter: 2013Q2

REPORT INFORMATION
  Report Type: Report from Study
  Country: CA (occurrence: CA)
  Receive Date: 20110620
  Receipt Date: 20130403
  Transmission Date: 20140414
  Serious: Yes (Hospitalization, Other)
  Sender: FDA-Public Use
  Company Number: CA-BRISTOL-MYERS SQUIBB COMPANY-15838188

PATIENT
  Age: 66 Year
  Sex: Male
  Weight: 85 kg

DRUGS (4)
  1. ORENCIA [Suspect]
     Indication: RHEUMATOID ARTHRITIS
     Dosage: LAST DOSE 13JUL^11;INF: 40 INFUSIONS. INFUSION SCHEDULED ON 4DEC12 WAS CANCELLED?2K74506: EXP JUL15
     Route: 042
     Dates: start: 20091021
  2. METHOTREXATE TABS [Concomitant]
  3. CELEBREX [Concomitant]
  4. REMICADE [Concomitant]

REACTIONS (5)
  - Femur fracture [Not Recovered/Not Resolved]
  - Ventricular extrasystoles [Recovered/Resolved]
  - Anxiety [Unknown]
  - Herpes zoster [Not Recovered/Not Resolved]
  - Neck pain [Not Recovered/Not Resolved]
